FAERS Safety Report 9435742 (Version 1)
Quarter: 2013Q3

REPORT INFORMATION
  Report Type: Spontaneous
  Country: US (occurrence: US)
  Receive Date: 20130801
  Receipt Date: 20130801
  Transmission Date: 20140515
  Serious: Yes (Disabling)
  Sender: FDA-Public Use
  Company Number: US-ASTRAZENECA-2013SE57081

PATIENT
  Age: 71 Year
  Sex: Female
  Weight: 68 kg

DRUGS (10)
  1. NEXIUM [Suspect]
     Indication: GASTROOESOPHAGEAL REFLUX DISEASE
     Route: 048
  2. LIVALO [Concomitant]
     Indication: BLOOD CHOLESTEROL ABNORMAL
     Route: 048
     Dates: start: 2010
  3. HYOSCYAMINE [Concomitant]
     Indication: IRRITABLE BOWEL SYNDROME
     Route: 048
     Dates: start: 2008
  4. NADOLOL [Concomitant]
     Indication: HYPERTENSION
     Route: 048
     Dates: start: 2003
  5. LASIX [Concomitant]
     Indication: HYPERTENSION
     Route: 048
     Dates: start: 2010
  6. METHOCARBAMOL [Concomitant]
     Indication: HEADACHE
     Route: 048
  7. AMITRIPTYLINE [Concomitant]
     Indication: HEADACHE
     Route: 048
     Dates: start: 201305
  8. HYDROXYZINE [Concomitant]
     Indication: ALOPECIA
     Route: 048
  9. MINOXIDIL [Concomitant]
     Indication: ALOPECIA
     Route: 048
     Dates: start: 20130718
  10. MIDRIN [Concomitant]
     Indication: MIGRAINE
     Dosage: 325-100-65 MG PRN
     Route: 048

REACTIONS (4)
  - Deafness bilateral [Unknown]
  - Irritable bowel syndrome [Unknown]
  - Alopecia [Unknown]
  - Diarrhoea [Unknown]
